FAERS Safety Report 8499222-2 (Version None)
Quarter: 2012Q3

REPORT INFORMATION
  Report Type: 
  Country: None (occurrence: None)
  Receive Date: 20120710
  Receipt Date: 20120703
  Transmission Date: 20120928
  Serious: Yes (Other)
  Sender: FDA-Public Use
  Company Number: PHHY2012BR058089

PATIENT
  Sex: Female
  Weight: 47 kg

DRUGS (8)
  1. EXELON [Suspect]
     Indication: DEMENTIA ALZHEIMER'S TYPE
     Dosage: 9 MG / 5 CM2, 1 PATCH A DAY
     Route: 062
  2. DEFLAZACORT [Concomitant]
     Indication: ARTHRITIS
     Dosage: 1 DF, QD
  3. ROSUVASTATIN [Concomitant]
     Indication: BLOOD CHOLESTEROL
     Dosage: 1 DF, QD
     Route: 048
  4. COUMADIN [Concomitant]
     Indication: ANTICOAGULANT THERAPY
     Dosage: 2.5 MG, UNK
     Route: 048
  5. LEVOTHYROXINE SODIUM [Concomitant]
     Indication: HYPOTHYROIDISM
  6. AMLODOPINE BESYLATE AND VALSARTAN [Concomitant]
     Indication: HYPERTENSION
     Dosage: 1 DF, QD
     Route: 048
  7. MEMANTINE HYDROCHLORIDE [Concomitant]
     Indication: DEMENTIA ALZHEIMER'S TYPE
     Route: 048
  8. ALENDRONATE SODIUM [Concomitant]
     Indication: OSTEOPOROSIS

REACTIONS (3)
  - CEREBROVASCULAR ACCIDENT [None]
  - HYPERAESTHESIA [None]
  - APPLICATION SITE PAIN [None]
